FAERS Safety Report 4838987-5 (Version None)
Quarter: 2005Q4

REPORT INFORMATION
  Report Type: 
  Country: None (occurrence: None)
  Receive Date: 20051129
  Receipt Date: 20051118
  Transmission Date: 20060501
  Serious: Yes (Other)
  Sender: FDA-Public Use
  Company Number: GB-JNJFOC-20051104609

PATIENT
  Age: 29 Year
  Sex: Female

DRUGS (1)
  1. REMICADE [Suspect]
     Indication: CROHN'S DISEASE
     Dosage: 4TH INFUSION.
     Route: 042

REACTIONS (5)
  - ANTINUCLEAR ANTIBODY POSITIVE [None]
  - ARTHRITIS [None]
  - INFUSION RELATED REACTION [None]
  - PARAESTHESIA [None]
  - PARAESTHESIA ORAL [None]
